FAERS Safety Report 21278774 (Version 1)
Quarter: 2022Q3

REPORT INFORMATION
  Report Type: Spontaneous
  Country: US (occurrence: US)
  Receive Date: 20220901
  Receipt Date: 20220901
  Transmission Date: 20221026
  Serious: No
  Sender: FDA-Public Use
  Company Number: US-TEVA-2022-US-2066265

PATIENT
  Sex: Female

DRUGS (1)
  1. WARFARIN SODIUM [Suspect]
     Active Substance: WARFARIN SODIUM
     Indication: Thrombosis
     Dosage: SOMETIMES TAKES 1 TABLET AND SOMETIMES 1 AND A HALF TO MAKE IT 7.5MG
     Route: 065
     Dates: start: 202004

REACTIONS (1)
  - Drug ineffective [Unknown]
